FAERS Safety Report 10245457 (Version 2)
Quarter: 2014Q2

REPORT INFORMATION
  Report Type: Report from Study
  Country: US (occurrence: US)
  Receive Date: 20140618
  Receipt Date: 20140630
  Transmission Date: 20141212
  Serious: Yes (Hospitalization, Other)
  Sender: FDA-Public Use
  Company Number: US-ABBVIE-14P-163-1248382-00

PATIENT
  Age: 27 Year
  Sex: Female
  Weight: 93.07 kg

DRUGS (6)
  1. HUMIRA [Suspect]
     Indication: CROHN^S DISEASE
     Dates: start: 201001, end: 201001
  2. HUMIRA [Suspect]
     Dates: start: 201001, end: 201001
  3. HUMIRA [Suspect]
     Dates: start: 201002, end: 201403
  4. HUMIRA [Suspect]
     Indication: COLITIS ULCERATIVE
     Dates: start: 201403
  5. NEXIUM [Concomitant]
     Indication: GASTROOESOPHAGEAL REFLUX DISEASE
  6. WELLBUTRIN [Concomitant]
     Indication: DEPRESSION

REACTIONS (6)
  - Intestinal obstruction [Recovered/Resolved]
  - Abscess intestinal [Recovered/Resolved]
  - Nausea [Recovered/Resolved]
  - Vomiting [Recovered/Resolved]
  - Crohn^s disease [Recovered/Resolved]
  - Intestinal perforation [Recovered/Resolved]
